FAERS Safety Report 9857006 (Version 2)
Quarter: 2014Q3

REPORT INFORMATION
  Report Type: Spontaneous
  Country: FR (occurrence: None)
  Receive Date: 20140128
  Receipt Date: 20140929
  Transmission Date: 20150326
  Serious: Yes (Hospitalization)
  Sender: FDA-Public Use
  Company Number: 2014-000121

PATIENT
  Age: 78 Year
  Sex: Female

DRUGS (6)
  1. OMEPRAZOLE. [Concomitant]
     Active Substance: OMEPRAZOLE
  2. INSULIN [Concomitant]
     Active Substance: INSULIN NOS
  3. TAHOR [Concomitant]
     Active Substance: ATORVASTATIN CALCIUM
  4. COZAAR (LOSARTAN POTASSIUM) [Concomitant]
  5. LEVOTHYROX (LEVOTHYROXINE SODIUM) [Concomitant]
  6. ACTONEL [Suspect]
     Active Substance: RISEDRONATE SODIUM
     Indication: OSTEOPOROSIS
     Dosage: 75 MG ON 2 CONSECUTIVE DAYS MONTHLY, ORAL
     Route: 048
     Dates: start: 20121101, end: 20131102

REACTIONS (4)
  - Atrial fibrillation [None]
  - Cardiac failure [None]
  - N-terminal prohormone brain natriuretic peptide [None]
  - Angina pectoris [None]

NARRATIVE: CASE EVENT DATE: 20131104
